FAERS Safety Report 9288523 (Version 1)
Quarter: 2013Q2

REPORT INFORMATION
  Report Type: Spontaneous
  Country: US (occurrence: None)
  Receive Date: 20130509
  Receipt Date: 20130509
  Transmission Date: 20140414
  Serious: Yes (Other)
  Sender: FDA-Public Use
  Company Number: FK201301420

PATIENT
  Age: 28 Month
  Sex: Female

DRUGS (4)
  1. BUPIVACAINE\EPINEPHRINE [Suspect]
     Indication: EPIDURAL ANALGESIA
     Route: 008
  2. LIDOCAINE /EPINEPHRINE [Concomitant]
  3. GABAPENTIN (GABAPENTIN) [Concomitant]
  4. DEXAMETHASONE INJECTION (MANUFACTURER UNKNOWN) (DEXAMETHASONE SODIUM PHOSPHATE) (DEXAMETHASONE SODIUM PHOSPHATE) [Concomitant]

REACTIONS (5)
  - Spinal cord ischaemia [None]
  - Spinal cord oedema [None]
  - Paralysis flaccid [None]
  - Sensory loss [None]
  - Neuralgia [None]
